FAERS Safety Report 26021358 (Version 1)
Quarter: 2025Q4

REPORT INFORMATION
  Report Type: Spontaneous
  Country: US (occurrence: US)
  Receive Date: 20251110
  Receipt Date: 20251110
  Transmission Date: 20260118
  Serious: Yes (Other)
  Sender: ABBVIE
  Company Number: US-ABBVIE-6534962

PATIENT
  Sex: Female

DRUGS (1)
  1. REFRESH TEARS [Suspect]
     Active Substance: CARBOXYMETHYLCELLULOSE SODIUM
     Indication: Dry eye
     Dosage: 3 TO 4 TIMES PER DAY
     Route: 047

REACTIONS (3)
  - Eye operation [Unknown]
  - Lacrimation increased [Unknown]
  - Physical product label issue [Unknown]
